FAERS Safety Report 5613345-4 (Version None)
Quarter: 2008Q1

REPORT INFORMATION
  Report Type: 
  Country: None (occurrence: None)
  Receive Date: 20080130
  Receipt Date: 20080117
  Transmission Date: 20080703
  Serious: Yes (Death, Life-Threatening, Other)
  Sender: FDA-Public Use
  Company Number: 2007US002622

PATIENT
  Age: 79 Year
  Sex: Male

DRUGS (9)
  1. AMBISOME [Suspect]
     Indication: BRONCHOPULMONARY ASPERGILLOSIS
     Dosage: 100 MG, UID/QD;IV DRIP
     Route: 041
     Dates: start: 20070801, end: 20070806
  2. SOLDEM 3A (SODIUM LACTATE, POTASSIUM CHLORIDE, CARBOHYDRATES NOS, SODI [Concomitant]
  3. NOVO HEPARIN (HEPARIN  CALCIUM) [Concomitant]
  4. OMEGACIN (BIAPENEM) [Concomitant]
  5. AMINO ACIDS/CARBOHYDRATES/MINERALS/VITAMINS [Concomitant]
  6. OMEPRAL [Concomitant]
  7. PROPOFOL [Concomitant]
  8. SOL-MELCORT (METHYLPREDNISOLONE SODIUM SUCCINATE) [Concomitant]
  9. DOBUTAMINE HCL [Concomitant]

REACTIONS (10)
  - ANAEMIA [None]
  - BRONCHOPULMONARY ASPERGILLOSIS [None]
  - DISSEMINATED INTRAVASCULAR COAGULATION [None]
  - HYPOALBUMINAEMIA [None]
  - HYPOTENSION [None]
  - PLATELET COUNT DECREASED [None]
  - PULMONARY OEDEMA [None]
  - RESPIRATORY FAILURE [None]
  - STAPHYLOCOCCAL SEPSIS [None]
  - WHITE BLOOD CELL COUNT DECREASED [None]
